FAERS Safety Report 14688683 (Version 1)
Quarter: 2018Q1

REPORT INFORMATION
  Report Type: Spontaneous
  Country: IT (occurrence: IT)
  Receive Date: 20180328
  Receipt Date: 20180328
  Transmission Date: 20180509
  Serious: Yes (Hospitalization)
  Sender: FDA-Public Use
  Company Number: IT-BAYER-2018-028761

PATIENT
  Age: 19 Year
  Sex: Male

DRUGS (1)
  1. ASPIRINA 500 MG [Suspect]
     Active Substance: ASPIRIN
     Indication: PRODUCT USED FOR UNKNOWN INDICATION
     Dosage: 2 DF, ONCE
     Route: 048
     Dates: start: 20171110, end: 20171110

REACTIONS (3)
  - Melaena [Recovering/Resolving]
  - Duodenal ulcer [Recovering/Resolving]
  - Tremor [Recovering/Resolving]

NARRATIVE: CASE EVENT DATE: 20171112
